FAERS Safety Report 6572236-5 (Version None)
Quarter: 2010Q1

REPORT INFORMATION
  Report Type: 
  Country: None (occurrence: None)
  Receive Date: 20100205
  Receipt Date: 20100128
  Transmission Date: 20100710
  Serious: Yes (Other)
  Sender: FDA-Public Use
  Company Number: PHHY2010AU05237

PATIENT
  Sex: Male

DRUGS (4)
  1. VOLTAREN [Suspect]
     Indication: PROSTATIC DISORDER
     Dosage: 50 MG 3 TIMES A DAY
     Route: 054
  2. VOLTAREN [Suspect]
     Dosage: 100 MG 3 TIMES A DAY
     Route: 054
  3. VOLTAREN [Suspect]
     Dosage: 2 SUPPOSITORIES A WEEK
     Route: 054
  4. ACETAMINOPHEN AND CODEINE PHOSPHATE [Concomitant]
     Dosage: UNK

REACTIONS (4)
  - ANORECTAL DISCOMFORT [None]
  - DEFAECATION URGENCY [None]
  - DRUG INEFFECTIVE [None]
  - PROCTALGIA [None]
